FAERS Safety Report 23067629 (Version 1)
Quarter: 2023Q4

REPORT INFORMATION
  Report Type: Spontaneous
  Country: JP (occurrence: JP)
  Receive Date: 20231016
  Receipt Date: 20231016
  Transmission Date: 20240110
  Serious: Yes (Life-Threatening, Hospitalization, Other)
  Sender: FDA-Public Use
  Company Number: JP-ELI_LILLY_AND_COMPANY-JP202310001603

PATIENT
  Age: 50 Year
  Sex: Female

DRUGS (1)
  1. OLANZAPINE [Suspect]
     Active Substance: OLANZAPINE
     Indication: Depression
     Route: 048

REACTIONS (6)
  - Inappropriate antidiuretic hormone secretion [Unknown]
  - Water intoxication [Unknown]
  - Rhabdomyolysis [Recovering/Resolving]
  - Respiratory failure [Unknown]
  - Myoglobinuria [Unknown]
  - Inappropriate schedule of product administration [Unknown]
